FAERS Safety Report 24557468 (Version 1)
Quarter: 2024Q4

REPORT INFORMATION
  Report Type: Spontaneous
  Country: AU (occurrence: AU)
  Receive Date: 20241028
  Receipt Date: 20241028
  Transmission Date: 20250114
  Serious: Yes (Other)
  Sender: TAKEDA
  Company Number: AU-TAKEDA-2024TUS107205

PATIENT
  Age: 32 Year
  Sex: Female

DRUGS (9)
  1. MESALAMINE [Suspect]
     Active Substance: MESALAMINE
     Indication: Colitis ulcerative
     Dosage: UNK
     Route: 065
  2. AZATHIOPRINE [Suspect]
     Active Substance: AZATHIOPRINE
     Indication: Colitis ulcerative
     Dosage: UNK
     Route: 065
  3. INFLIXIMAB [Suspect]
     Active Substance: INFLIXIMAB
     Indication: Colitis ulcerative
     Dosage: UNK
     Route: 042
     Dates: end: 2022
  4. INFLIXIMAB [Suspect]
     Active Substance: INFLIXIMAB
     Dosage: UNK
     Route: 042
     Dates: start: 2022, end: 202310
  5. MERCAPTOPURINE [Suspect]
     Active Substance: MERCAPTOPURINE
     Indication: Colitis ulcerative
     Dosage: UNK
     Route: 065
     Dates: start: 2022, end: 202302
  6. FLUDROCORTISONE [Concomitant]
     Active Substance: FLUDROCORTISONE
     Indication: Addison^s disease
     Dosage: UNK
     Route: 065
  7. PREDNISONE [Concomitant]
     Active Substance: PREDNISONE
     Indication: Addison^s disease
     Dosage: UNK
     Route: 065
  8. UPADACITINIB [Concomitant]
     Active Substance: UPADACITINIB
     Dosage: 45 MILLIGRAM, QD
     Route: 065
  9. UPADACITINIB [Concomitant]
     Active Substance: UPADACITINIB
     Dosage: 30 MILLIGRAM, QD
     Route: 065

REACTIONS (2)
  - Alopecia areata [Recovering/Resolving]
  - Alopecia universalis [Recovering/Resolving]

NARRATIVE: CASE EVENT DATE: 20221201
